FAERS Safety Report 7021116-X (Version None)
Quarter: 2010Q3

REPORT INFORMATION
  Report Type: 
  Country: None (occurrence: None)
  Receive Date: 20100929
  Receipt Date: 20100923
  Transmission Date: 20110219
  Serious: Yes (Death)
  Sender: FDA-Public Use
  Company Number: PHHY2010US62875

PATIENT
  Sex: Female
  Weight: 42.177 kg

DRUGS (4)
  1. EXJADE [Suspect]
     Indication: NEOPLASM
     Dosage: 1000 MG, DAILY
     Route: 048
     Dates: start: 20090604
  2. ZOFRAN [Concomitant]
  3. LEVAQUIN [Concomitant]
  4. VANCOMYCIN [Concomitant]

REACTIONS (5)
  - BACTERIAL SEPSIS [None]
  - CARDIO-RESPIRATORY ARREST [None]
  - PNEUMONIA [None]
  - RESPIRATORY FAILURE [None]
  - SEPTIC SHOCK [None]
